FAERS Safety Report 10332021 (Version 1)
Quarter: 2014Q3

REPORT INFORMATION
  Report Type: Spontaneous
  Country: KR (occurrence: KR)
  Receive Date: 20140722
  Receipt Date: 20140722
  Transmission Date: 20150326
  Serious: Yes (Other)
  Sender: FDA-Public Use
  Company Number: KR-PFIZER INC-2014200257

PATIENT
  Sex: Male

DRUGS (1)
  1. VIAGRA [Suspect]
     Active Substance: SILDENAFIL CITRATE
     Dosage: 50 MG (HALF OF 100MG), UNK
     Route: 048

REACTIONS (3)
  - Blindness transient [Unknown]
  - Visual impairment [Unknown]
  - Drug ineffective [Unknown]
